FAERS Safety Report 8896072 (Version 5)
Quarter: 2013Q1

REPORT INFORMATION
  Report Type: Report from Study
  Country: GB (occurrence: GB)
  Receive Date: 20121108
  Receipt Date: 20130326
  Transmission Date: 20140127
  Serious: Yes (Other)
  Sender: FDA-Public Use
  Company Number: GB-NOVOPROD-362994

PATIENT
  Age: 73 Year
  Sex: Male
  Weight: 89.5 kg

DRUGS (1)
  1. LIRAGLUTIDE FLEXPEN [Suspect]
     Indication: TYPE 2 DIABETES MELLITUS
     Dosage: 1.8 MG, QD
     Route: 058
     Dates: start: 20120725

REACTIONS (2)
  - C-reactive protein increased [Recovered/Resolved]
  - Urine albumin/creatinine ratio increased [Recovered/Resolved]
